FAERS Safety Report 9162192 (Version 1)
Quarter: 2013Q1

REPORT INFORMATION
  Report Type: Spontaneous
  Country: US (occurrence: None)
  Receive Date: 20130222
  Receipt Date: 20130222
  Transmission Date: 20140127
  Serious: Yes (Other)
  Sender: FDA-Public Use
  Company Number: JP-P-029821

PATIENT
  Age: 58 Year
  Sex: Female
  Weight: 108.41 kg

DRUGS (1)
  1. XYREM (500 MILLIGRAM/MILLILITERS, SOLUTION)(SODIUM OXYBATE) [Suspect]
     Indication: NARCOLEPSY
     Route: 048
     Dates: start: 20120202

REACTIONS (2)
  - Angle closure glaucoma [None]
  - Hypoaesthesia [None]
